FAERS Safety Report 14141686 (Version 1)
Quarter: 2017Q4

REPORT INFORMATION
  Report Type: Spontaneous
  Country: US (occurrence: US)
  Receive Date: 20171030
  Receipt Date: 20171030
  Transmission Date: 20180321
  Serious: No
  Sender: FDA-Public Use
  Company Number: US-GLAXOSMITHKLINE-US2017165069

PATIENT
  Sex: Female

DRUGS (1)
  1. CEFUROXIME AXETIL TABLET [Suspect]
     Active Substance: CEFUROXIME AXETIL
     Indication: CYSTITIS
     Dosage: 500 MG, BID
     Dates: start: 201704

REACTIONS (2)
  - Drug ineffective [Recovered/Resolved]
  - Product substitution issue [None]
